FAERS Safety Report 21015812 (Version 2)
Quarter: 2022Q3

REPORT INFORMATION
  Report Type: Report from Study
  Country: FR (occurrence: FR)
  Receive Date: 20220628
  Receipt Date: 20220726
  Transmission Date: 20221026
  Serious: Yes (Other)
  Sender: FDA-Public Use
  Company Number: FR-CELGENE-FRA-20220103868

PATIENT
  Age: 80 Year
  Sex: Female
  Weight: 55 kg

DRUGS (8)
  1. ISTODAX [Suspect]
     Active Substance: ROMIDEPSIN
     Indication: Angioimmunoblastic T-cell lymphoma
     Dosage: FREQUENCY TEXT: DAYS 1, 8, 15 OF EACH 28-DAY CYCLE
     Route: 065
     Dates: start: 202109
  2. ISTODAX [Suspect]
     Active Substance: ROMIDEPSIN
     Dosage: FREQUENCY TEXT: DAYS 1,8, 15 OF EACH 28-DAY CYCLE
     Route: 065
     Dates: start: 20211018
  3. ISTODAX [Suspect]
     Active Substance: ROMIDEPSIN
     Route: 065
     Dates: start: 20211021
  4. ISTODAX [Suspect]
     Active Substance: ROMIDEPSIN
     Dosage: D1
     Route: 065
     Dates: start: 20220404
  5. ISTODAX [Suspect]
     Active Substance: ROMIDEPSIN
     Dosage: D8
     Route: 065
     Dates: start: 20220411
  6. ISTODAX [Suspect]
     Active Substance: ROMIDEPSIN
     Dosage: D15
     Route: 065
     Dates: start: 20220419
  7. BACTRIM [Concomitant]
     Active Substance: SULFAMETHOXAZOLE\TRIMETHOPRIM
     Indication: Infection prophylaxis
     Dosage: FREQUENCY TEXT: NOT PROVIDED
     Route: 065
  8. VALACYCLOVIR HYDROCHLORIDE [Concomitant]
     Active Substance: VALACYCLOVIR HYDROCHLORIDE
     Indication: Infection prophylaxis
     Dosage: FREQUENCY TEXT: NOT PROVIDED
     Route: 065

REACTIONS (6)
  - Pyoderma gangrenosum [Recovering/Resolving]
  - Neutropenia [Recovering/Resolving]
  - Thrombocytopenia [Unknown]
  - Ulcer [Unknown]
  - Atrial fibrillation [Unknown]
  - Electrocardiogram abnormal [Unknown]

NARRATIVE: CASE EVENT DATE: 20220303
